FAERS Safety Report 9620263 (Version 1)
Quarter: 2013Q4

REPORT INFORMATION
  Report Type: Spontaneous
  Country: US (occurrence: US)
  Receive Date: 20131014
  Receipt Date: 20131014
  Transmission Date: 20140711
  Serious: No
  Sender: FDA-Public Use
  Company Number: US-ALLERGAN-1306346US

PATIENT
  Age: 81 Year
  Sex: Female

DRUGS (3)
  1. ALPHAGAN [Suspect]
     Indication: GLAUCOMA
     Route: 047
  2. NORVASC                            /00972401/ [Concomitant]
     Indication: HYPERTENSION
     Dosage: UNK
  3. PRAVACHOL [Concomitant]
     Indication: PRODUCT USED FOR UNKNOWN INDICATION

REACTIONS (1)
  - Drug ineffective [Unknown]
